FAERS Safety Report 6528889-0 (Version None)
Quarter: 2010Q1

REPORT INFORMATION
  Report Type: 
  Country: None (occurrence: None)
  Receive Date: 20100106
  Receipt Date: 20091224
  Transmission Date: 20100710
  Serious: Yes (Other)
  Sender: FDA-Public Use
  Company Number: PHHY2009GB59300

PATIENT
  Sex: Male

DRUGS (3)
  1. CLOZARIL [Suspect]
     Dosage: UNK
     Dates: start: 20040202
  2. CLOZARIL [Suspect]
     Dosage: UNK
     Dates: start: 20091207
  3. CLOZAPINE [Suspect]

REACTIONS (3)
  - NEUTROPHIL COUNT INCREASED [None]
  - RENAL FAILURE ACUTE [None]
  - WHITE BLOOD CELL COUNT INCREASED [None]
